FAERS Safety Report 9348165 (Version 1)
Quarter: 2013Q2

REPORT INFORMATION
  Report Type: Spontaneous
  Country: US (occurrence: None)
  Receive Date: 20130612
  Receipt Date: 20130612
  Transmission Date: 20140414
  Serious: Yes (Other)
  Sender: FDA-Public Use
  Company Number: None

PATIENT
  Age: 20 Year
  Sex: Female

DRUGS (1)
  1. BETHEL [Suspect]

REACTIONS (5)
  - Epiglottitis [None]
  - Product quality issue [None]
  - Chest discomfort [None]
  - Heart rate increased [None]
  - Panic reaction [None]
